FAERS Safety Report 18636766 (Version 1)
Quarter: 2020Q4

REPORT INFORMATION
  Report Type: Spontaneous
  Country: None (occurrence: US)
  Receive Date: 20201219
  Receipt Date: 20201219
  Transmission Date: 20210114
  Serious: No
  Sender: FDA-Public Use
  Company Number: US-AMPHASTAR PHARMACEUTICALS, INC.-2103207

PATIENT
  Age: 25 Year
  Sex: Female
  Weight: 52.27 kg

DRUGS (1)
  1. MEDROXYPROGESTERONE ACETATE (SINGLE-DOSE SYRINGE) [Suspect]
     Active Substance: MEDROXYPROGESTERONE ACETATE
     Indication: CONTRACEPTION
     Route: 030
     Dates: start: 2019

REACTIONS (2)
  - Metrorrhagia [Unknown]
  - Abdominal pain [Unknown]

NARRATIVE: CASE EVENT DATE: 20201006
